FAERS Safety Report 12390647 (Version 2)
Quarter: 2017Q2

REPORT INFORMATION
  Report Type: Spontaneous
  Country: CA (occurrence: CA)
  Receive Date: 20160520
  Receipt Date: 20170612
  Transmission Date: 20170830
  Serious: Yes (Hospitalization)
  Sender: FDA-Public Use
  Company Number: US-ASTRAZENECA-2016SE52219

PATIENT
  Age: 46 Year
  Sex: Male
  Weight: 71 kg

DRUGS (11)
  1. CAYSTON [Suspect]
     Active Substance: AZTREONAM
     Indication: CYSTIC FIBROSIS
     Route: 055
  2. SALBUTAMOL [Concomitant]
     Active Substance: ALBUTEROL
  3. MACROGOL [Concomitant]
     Active Substance: POLYETHYLENE GLYCOLS
  4. SYMBICORT [Suspect]
     Active Substance: BUDESONIDE\FORMOTEROL FUMARATE DIHYDRATE
     Dosage: DOSE AND FREQUENCY UNKNOWN UNKNOWN
     Route: 055
  5. CAYSTON [Suspect]
     Active Substance: AZTREONAM
     Indication: LUNG DISORDER
     Route: 055
  6. CAYSTON [Suspect]
     Active Substance: AZTREONAM
     Indication: CYSTIC FIBROSIS
     Route: 055
     Dates: start: 201410
  7. CAYSTON [Suspect]
     Active Substance: AZTREONAM
     Indication: LUNG DISORDER
     Route: 055
  8. CREON [Concomitant]
     Active Substance: PANCRELIPASE AMYLASE\PANCRELIPASE LIPASE\PANCRELIPASE PROTEASE
  9. PANTOLOC [Concomitant]
     Active Substance: PANTOPRAZOLE SODIUM
  10. CAYSTON [Suspect]
     Active Substance: AZTREONAM
     Indication: LUNG DISORDER
     Route: 055
     Dates: start: 201410
  11. CAYSTON [Suspect]
     Active Substance: AZTREONAM
     Indication: LUNG DISORDER
     Route: 055
     Dates: start: 201410

REACTIONS (2)
  - Infective pulmonary exacerbation of cystic fibrosis [Recovered/Resolved]
  - Bile duct stone [Recovered/Resolved]

NARRATIVE: CASE EVENT DATE: 20160107
